FAERS Safety Report 5463490-1 (Version None)
Quarter: 2007Q3

REPORT INFORMATION
  Report Type: 
  Country: None (occurrence: None)
  Receive Date: 20070920
  Receipt Date: 20070911
  Transmission Date: 20080115
  Serious: Yes (Other)
  Sender: FDA-Public Use
  Company Number: FI-PFIZER INC-2007075420

PATIENT
  Sex: Male

DRUGS (6)
  1. DALACIN [Suspect]
     Dosage: FREQ:EVERY DAY
     Route: 048
     Dates: start: 20070831, end: 20070910
  2. TRAMADOL HCL [Concomitant]
  3. BURANA [Concomitant]
  4. TREXAN [Concomitant]
  5. ANTI-DIABETICS [Concomitant]
  6. ANTIHYPERTENSIVES [Concomitant]

REACTIONS (4)
  - DYSPNOEA [None]
  - FATIGUE [None]
  - PRURITUS [None]
  - RASH [None]
